FAERS Safety Report 6998842-1 (Version None)
Quarter: 2010Q3

REPORT INFORMATION
  Report Type: 
  Country: None (occurrence: None)
  Receive Date: 20100920
  Receipt Date: 20100302
  Transmission Date: 20110219
  Serious: Yes (Other)
  Sender: FDA-Public Use
  Company Number: US-ASTRAZENECA-2010SE32215

PATIENT
  Age: 14996 Day
  Sex: Female

DRUGS (1)
  1. SEROQUEL [Suspect]
     Route: 048
     Dates: start: 20050101

REACTIONS (5)
  - ABDOMINAL PAIN [None]
  - BACK PAIN [None]
  - DIABETES MELLITUS [None]
  - PANCREATITIS CHRONIC [None]
  - RHEUMATOID ARTHRITIS [None]
